FAERS Safety Report 5663881-X (Version None)
Quarter: 2008Q1

REPORT INFORMATION
  Report Type: 
  Country: None (occurrence: None)
  Receive Date: 20080311
  Receipt Date: 20080307
  Transmission Date: 20080703
  Serious: Yes (Hospitalization)
  Sender: FDA-Public Use
  Company Number: SP01795

PATIENT
  Age: 74 Year
  Sex: Male

DRUGS (6)
  1. VISICOL [Suspect]
     Indication: COLONOSCOPY
     Dosage: 50 GM, ORAL
     Route: 048
     Dates: start: 20080201, end: 20080201
  2. CANDESARTAN CILEXETIL [Concomitant]
  3. AMLODIPINE BESYLATE [Concomitant]
  4. SENNOSIDE [Concomitant]
  5. THYROID TAB [Concomitant]
  6. GLUCAGON [Concomitant]

REACTIONS (7)
  - DEHYDRATION [None]
  - HYPOGLYCAEMIA [None]
  - HYPOTENSION [None]
  - MALAISE [None]
  - NO THERAPEUTIC RESPONSE [None]
  - RENAL FAILURE [None]
  - VOMITING [None]
